FAERS Safety Report 9352823 (Version 2)
Quarter: 2013Q3

REPORT INFORMATION
  Report Type: Spontaneous
  Country: US (occurrence: US)
  Receive Date: 20130618
  Receipt Date: 20130709
  Transmission Date: 20140515
  Serious: Yes (Hospitalization)
  Sender: FDA-Public Use
  Company Number: US-BIOGENIDEC-2013BI052499

PATIENT
  Age: 49 Year
  Sex: Male

DRUGS (1)
  1. TYSABRI [Suspect]
     Indication: MULTIPLE SCLEROSIS
     Route: 042
     Dates: start: 20120703, end: 20120703

REACTIONS (7)
  - Cerebrovascular insufficiency [Unknown]
  - Cystitis [Not Recovered/Not Resolved]
  - Gastric infection [Not Recovered/Not Resolved]
  - Renal pain [Not Recovered/Not Resolved]
  - Constipation [Unknown]
  - Cognitive disorder [Not Recovered/Not Resolved]
  - Coordination abnormal [Not Recovered/Not Resolved]
